FAERS Safety Report 5280929-5 (Version None)
Quarter: 2007Q1

REPORT INFORMATION
  Report Type: 
  Country: None (occurrence: None)
  Receive Date: 20070329
  Receipt Date: 20070320
  Transmission Date: 20070707
  Serious: Yes (Other)
  Sender: FDA-Public Use
  Company Number: DE-ELI_LILLY_AND_COMPANY-DE200610005273

PATIENT
  Age: 82 Year
  Sex: Female

DRUGS (9)
  1. FORTEO [Suspect]
     Dosage: UNK, DAILY (1/D)
     Route: 058
     Dates: start: 20060101
  2. FORTEO [Suspect]
     Dosage: UNK, DAILY (1/D)
     Route: 058
  3. LEVOTHYROXINE SODIUM [Concomitant]
     Indication: HYPOTHYROIDISM
  4. METOHEXAL [Concomitant]
     Dosage: 50 MG, EACH MORNING
  5. LISINOPRIL [Concomitant]
     Dosage: 2.5 MG, EACH MORNING
     Route: 048
  6. MIRTAZAPINE [Concomitant]
     Dosage: 15 MG, EACH EVENING
     Route: 048
  7. THIAMAZOL [Concomitant]
     Dosage: 2.5 MG, EACH MORNING
     Route: 048
  8. FUROSEMIDE [Concomitant]
     Route: 048
  9. ASPIRIN [Concomitant]
     Dosage: 100 MG, 3/W
     Route: 048

REACTIONS (5)
  - ANAEMIA [None]
  - DIARRHOEA [None]
  - HAEMOGLOBIN DECREASED [None]
  - VOMITING [None]
  - WEIGHT DECREASED [None]
